FAERS Safety Report 5947119-1 (Version None)
Quarter: 2008Q4

REPORT INFORMATION
  Report Type: 
  Country: None (occurrence: None)
  Receive Date: 20081106
  Receipt Date: 20081027
  Transmission Date: 20090506
  Serious: Yes (Other)
  Sender: FDA-Public Use
  Company Number: ZYD-AE-08-151

PATIENT
  Sex: Female

DRUGS (4)
  1. ATENOLOL [Suspect]
     Indication: HYPERTENSION
     Dosage: 50MG - QD - PO
     Route: 048
     Dates: start: 20080906
  2. PREVACID 30MG BID - PO [Concomitant]
  3. ALTACE 10MG DAILY - PO [Concomitant]
  4. IMDUR 30MG DAILY - PO [Concomitant]

REACTIONS (7)
  - ANGINA PECTORIS [None]
  - CARDIAC FLUTTER [None]
  - GASTROOESOPHAGEAL REFLUX DISEASE [None]
  - HEART RATE INCREASED [None]
  - HYPERHIDROSIS [None]
  - PAIN IN EXTREMITY [None]
  - PRODUCT QUALITY ISSUE [None]
